FAERS Safety Report 7434868-1 (Version None)
Quarter: 2011Q2

REPORT INFORMATION
  Report Type: 
  Country: None (occurrence: None)
  Receive Date: 20110425
  Receipt Date: 20110422
  Transmission Date: 20111010
  Serious: No
  Sender: FDA-Public Use
  Company Number: US-TEVA-277378USA

PATIENT
  Sex: Female
  Weight: 95.34 kg

DRUGS (2)
  1. PLAN B ONE-STEP [Suspect]
     Indication: POST COITAL CONTRACEPTION
     Dosage: 1.5 MILLIGRAM;
     Route: 048
     Dates: start: 20110404, end: 20110404
  2. PHERMINETMINE [Concomitant]
     Indication: WEIGHT CONTROL
     Dosage: 30 MILLIGRAM;
     Route: 048
     Dates: start: 20110201

REACTIONS (3)
  - BREAST TENDERNESS [None]
  - BACK PAIN [None]
  - MENSTRUATION IRREGULAR [None]
